FAERS Safety Report 5980086-3 (Version None)
Quarter: 2008Q4

REPORT INFORMATION
  Report Type: 
  Country: None (occurrence: None)
  Receive Date: 20081202
  Receipt Date: 20081202
  Transmission Date: 20090506
  Serious: Yes (Other)
  Sender: FDA-Public Use
  Company Number: None

PATIENT
  Age: 52 Year
  Sex: Male
  Weight: 61.2356 kg

DRUGS (1)
  1. NORDITROPIN [Suspect]
     Dosage: 0.35 MG DAILY SQ
     Route: 058
     Dates: start: 20060501, end: 20080501

REACTIONS (8)
  - ALOPECIA [None]
  - DISTURBANCE IN ATTENTION [None]
  - DYSPNOEA [None]
  - FLANK PAIN [None]
  - HYPERSENSITIVITY [None]
  - PAIN [None]
  - TACHYCARDIA [None]
  - VISION BLURRED [None]
